FAERS Safety Report 13765132 (Version 4)
Quarter: 2017Q4

REPORT INFORMATION
  Report Type: Report from Study
  Country: US (occurrence: US)
  Receive Date: 20170718
  Receipt Date: 20171004
  Transmission Date: 20180320
  Serious: No
  Sender: FDA-Public Use
  Company Number: PHEH2017US022001

PATIENT
  Age: 10 Year
  Sex: Female
  Weight: 23.95 kg

DRUGS (1)
  1. ILARIS [Suspect]
     Active Substance: CANAKINUMAB
     Indication: STILL^S DISEASE
     Dosage: 88 MG, QMO
     Route: 058
     Dates: start: 20150717

REACTIONS (4)
  - Arthralgia [Unknown]
  - Inappropriate schedule of drug administration [Unknown]
  - Injection site swelling [Recovered/Resolved]
  - Urticaria [Recovered/Resolved]

NARRATIVE: CASE EVENT DATE: 20170710
